FAERS Safety Report 22145452 (Version 1)
Quarter: 2023Q1

REPORT INFORMATION
  Report Type: Spontaneous
  Country: GB (occurrence: GB)
  Receive Date: 20230328
  Receipt Date: 20230328
  Transmission Date: 20230418
  Serious: Yes (Life-Threatening)
  Sender: FDA-Public Use
  Company Number: GB-MHRA-MED-202303241225009400-HLGJD

PATIENT
  Age: 74 Year
  Sex: Female
  Weight: 55 kg

DRUGS (10)
  1. RISPERDAL [Suspect]
     Active Substance: RISPERIDONE
     Indication: Product used for unknown indication
     Route: 065
     Dates: start: 20230322, end: 20230322
  2. AMLODIPINE [Concomitant]
     Active Substance: AMLODIPINE BESYLATE
     Indication: Hypertension
  3. ASPIRIN [Concomitant]
     Active Substance: ASPIRIN
     Indication: Peripheral venous disease
  4. ATORVASTATIN [Concomitant]
     Active Substance: ATORVASTATIN
  5. CALCIUM\VITAMIN D [Concomitant]
     Active Substance: CALCIUM\VITAMIN D
  6. FAMOTIDINE [Concomitant]
     Active Substance: FAMOTIDINE
  7. LANSOPRAZOLE [Concomitant]
     Active Substance: LANSOPRAZOLE
  8. METFORMIN [Concomitant]
     Active Substance: METFORMIN HYDROCHLORIDE
     Indication: Diabetes mellitus
  9. MIRTAZAPINE [Concomitant]
     Active Substance: MIRTAZAPINE
  10. PERINDOPRIL [Concomitant]
     Active Substance: PERINDOPRIL

REACTIONS (4)
  - Altered state of consciousness [Recovered/Resolved]
  - Atrial fibrillation [Recovered/Resolved]
  - Pulmonary oedema [Recovered/Resolved]
  - Medication error [Unknown]

NARRATIVE: CASE EVENT DATE: 20230322
